FAERS Safety Report 15061558 (Version 1)
Quarter: 2018Q2

REPORT INFORMATION
  Report Type: Other
  Country: GB (occurrence: GB)
  Receive Date: 20180625
  Receipt Date: 20180625
  Transmission Date: 20180711
  Serious: Yes (Hospitalization)
  Sender: FDA-Public Use
  Company Number: GB-ETHYPHARM USA CORP.-2018-EY-BP-GB-00309

PATIENT
  Age: 38 Year
  Sex: Female

DRUGS (2)
  1. HEROIN [Concomitant]
     Active Substance: DIAMORPHINE
     Indication: PRODUCT USED FOR UNKNOWN INDICATION
     Dosage: 3 BAGS
     Route: 065
     Dates: start: 20180110
  2. BUPRENORPHINE. [Suspect]
     Active Substance: BUPRENORPHINE
     Indication: DRUG DEPENDENCE
     Dosage: 16 MG, UNK
     Route: 048
     Dates: start: 20170901

REACTIONS (6)
  - Exposure during pregnancy [Unknown]
  - Drug dose omission [Unknown]
  - Haematemesis [Unknown]
  - Premature labour [Unknown]
  - Vaginal haemorrhage [Unknown]
  - Drug withdrawal syndrome [Unknown]

NARRATIVE: CASE EVENT DATE: 20180111
